FAERS Safety Report 12921823 (Version 2)
Quarter: 2017Q1

REPORT INFORMATION
  Report Type: Spontaneous
  Country: CA (occurrence: CA)
  Receive Date: 20161108
  Receipt Date: 20170111
  Transmission Date: 20170428
  Serious: Yes (Hospitalization, Other)
  Sender: FDA-Public Use
  Company Number: CA-ABBVIE-16P-028-1772570-00

PATIENT
  Age: 10 Year
  Sex: Female
  Weight: 27 kg

DRUGS (2)
  1. LUPRON DEPOT [Suspect]
     Active Substance: LEUPROLIDE ACETATE
     Indication: PRECOCIOUS PUBERTY
     Route: 030
  2. LUPRON DEPOT [Suspect]
     Active Substance: LEUPROLIDE ACETATE
     Route: 030
     Dates: start: 20160607, end: 20160607

REACTIONS (18)
  - Contusion [Recovering/Resolving]
  - Swelling [Recovering/Resolving]
  - Erythema [Recovering/Resolving]
  - Purpura [Recovering/Resolving]
  - Purpura [Unknown]
  - Abasia [Recovering/Resolving]
  - Aspartate aminotransferase increased [Recovering/Resolving]
  - Oedema peripheral [Recovering/Resolving]
  - Blood creatine phosphokinase increased [Recovering/Resolving]
  - C-reactive protein increased [Recovering/Resolving]
  - Discomfort [Recovering/Resolving]
  - Contusion [Recovering/Resolving]
  - Vascular purpura [Recovering/Resolving]
  - Pain [Unknown]
  - Vasculitis [Recovering/Resolving]
  - Rash macular [Unknown]
  - Pain [Recovering/Resolving]
  - Injection site reaction [Unknown]

NARRATIVE: CASE EVENT DATE: 20160608
